FAERS Safety Report 6549766-5 (Version None)
Quarter: 2010Q1

REPORT INFORMATION
  Report Type: 
  Country: None (occurrence: None)
  Receive Date: 20100125
  Receipt Date: 20100114
  Transmission Date: 20100710
  Serious: Yes (Hospitalization)
  Sender: FDA-Public Use
  Company Number: US-ASTRAZENECA-2010SE01668

PATIENT
  Age: 491 Month
  Sex: Female
  Weight: 86.2 kg

DRUGS (2)
  1. SEROQUEL [Suspect]
     Indication: DEPRESSION
     Route: 048
     Dates: start: 20091031, end: 20091101
  2. SEROQUEL [Suspect]
     Route: 048
     Dates: start: 20091101, end: 20091201

REACTIONS (5)
  - DYSKINESIA [None]
  - HALLUCINATION [None]
  - INSOMNIA [None]
  - PARANOIA [None]
  - TREMOR [None]
